FAERS Safety Report 8082038-9 (Version None)
Quarter: 2012Q1

REPORT INFORMATION
  Report Type: 
  Country: None (occurrence: None)
  Receive Date: 20120130
  Receipt Date: 20120125
  Transmission Date: 20120608
  Serious: Yes (Death, Disabling, Other)
  Sender: FDA-Public Use
  Company Number: PHHY2012GR007143

PATIENT
  Age: 76 Year
  Sex: Male

DRUGS (4)
  1. FILGRASTIM [Suspect]
     Indication: PROPHYLAXIS
  2. CAPECITABINE [Suspect]
     Dosage: 2000 MG/M2, (ON DAYS 1-5)
  3. DOCETAXEL [Suspect]
     Indication: ADENOCARCINOMA
     Dosage: 75 MG/M2 (ON DAY 1)
  4. CARBOPLATIN [Suspect]
     Indication: ADENOCARCINOMA
     Dosage: UNK UKN, UNK (ON DAY 1)

REACTIONS (9)
  - METASTATIC NEOPLASM [None]
  - LEPROSY [None]
  - SKIN NECROSIS [None]
  - THROMBOSIS [None]
  - NEOPLASM MALIGNANT [None]
  - LEPROMATOUS LEPROSY [None]
  - GANGRENE [None]
  - NEUTROPENIA [None]
  - SKIN LESION [None]
